FAERS Safety Report 15741092 (Version 1)
Quarter: 2018Q4

REPORT INFORMATION
  Report Type: Spontaneous
  Country: US (occurrence: US)
  Receive Date: 20181219
  Receipt Date: 20181219
  Transmission Date: 20190205
  Serious: Yes (Disabling)
  Sender: FDA-Public Use
  Company Number: None

PATIENT
  Age: 60 Year
  Sex: Female
  Weight: 51.3 kg

DRUGS (2)
  1. DISULFIRAM 250 MG TABLET [Suspect]
     Active Substance: DISULFIRAM
     Indication: ALCOHOL ABUSE
     Dosage: ?          QUANTITY:2 TABLET(S);?
     Route: 048
     Dates: start: 20180917, end: 20181031
  2. DISULFIRAM 250 MG TABLET [Suspect]
     Active Substance: DISULFIRAM
     Indication: PROPHYLAXIS
     Dosage: ?          QUANTITY:2 TABLET(S);?
     Route: 048
     Dates: start: 20180917, end: 20181031

REACTIONS (12)
  - Tremor [None]
  - Paraesthesia [None]
  - Somnolence [None]
  - Feeling abnormal [None]
  - Dysgraphia [None]
  - Gait disturbance [None]
  - Dyspnoea [None]
  - Dysgeusia [None]
  - Hepatic function abnormal [None]
  - Confusional state [None]
  - Muscle spasms [None]
  - Dysarthria [None]

NARRATIVE: CASE EVENT DATE: 20180924
